FAERS Safety Report 13772534 (Version 4)
Quarter: 2017Q4

REPORT INFORMATION
  Report Type: Spontaneous
  Country: BR (occurrence: BR)
  Receive Date: 20170720
  Receipt Date: 20171017
  Transmission Date: 20180320
  Serious: Yes (Hospitalization)
  Sender: FDA-Public Use
  Company Number: BR-GLAXOSMITHKLINE-BR2017GSK110469

PATIENT
  Age: 1 Year
  Sex: Male
  Weight: 14.8 kg

DRUGS (1)
  1. ZINNAT [Suspect]
     Active Substance: CEFUROXIME AXETIL
     Indication: LUNG INFECTION
     Dosage: 5 ML, BID

REACTIONS (4)
  - Vomiting [Unknown]
  - Dysphagia [Unknown]
  - Product quality issue [Unknown]
  - Overdose [Recovered/Resolved]
